FAERS Safety Report 9122807 (Version 1)
Quarter: 2013Q1

REPORT INFORMATION
  Report Type: Spontaneous
  Country: US (occurrence: US)
  Receive Date: 20130115
  Receipt Date: 20130115
  Transmission Date: 20140127
  Serious: Yes (Other)
  Sender: FDA-Public Use
  Company Number: US-PFIZER INC-2013015322

PATIENT
  Sex: Male

DRUGS (3)
  1. ADVIL [Suspect]
     Indication: PROCEDURAL PAIN
     Dosage: 20 TO 30 TABLETS IN A DAY
     Route: 048
     Dates: start: 201301
  2. ADVIL [Suspect]
     Dosage: UNK, 1X/DAY
     Route: 048
     Dates: end: 20130110
  3. PERCOCET [Concomitant]
     Dosage: UNK

REACTIONS (5)
  - Overdose [Unknown]
  - Mental impairment [Unknown]
  - Confusional state [Unknown]
  - Somnolence [Unknown]
  - Neck pain [Unknown]
